FAERS Safety Report 7027148-X (Version None)
Quarter: 2010Q4

REPORT INFORMATION
  Report Type: 
  Country: None (occurrence: None)
  Receive Date: 20101004
  Receipt Date: 20100930
  Transmission Date: 20110411
  Serious: Yes (Death)
  Sender: FDA-Public Use
  Company Number: PL-BRISTOL-MYERS SQUIBB COMPANY-15228109

PATIENT
  Age: 57 Year
  Sex: Female
  Weight: 55 kg

DRUGS (2)
  1. CISPLATIN [Suspect]
     Indication: NON-SMALL CELL LUNG CANCER
     Dosage: THIRD AND RECENT INFUSION (85MG) ON 02JUL10.
     Route: 042
     Dates: start: 20100507, end: 20100702
  2. GEMCITABINE [Suspect]
     Indication: NON-SMALL CELL LUNG CANCER
     Dosage: SIXTH AND RECENT INFUSION (1425MG)ON 09JUL10.
     Route: 042
     Dates: start: 20100507, end: 20100709

REACTIONS (4)
  - GENERAL PHYSICAL HEALTH DETERIORATION [None]
  - PANCYTOPENIA [None]
  - PYREXIA [None]
  - RESPIRATORY TRACT HAEMORRHAGE [None]
